FAERS Safety Report 8806635 (Version 2)
Quarter: 2012Q4

REPORT INFORMATION
  Report Type: 
  Country: US (occurrence: US)
  Receive Date: 20120925
  Receipt Date: 20121113
  Transmission Date: 20130627
  Serious: Yes (Other)
  Sender: FDA-Public Use
  Company Number: US-NOVOPROD-359523

PATIENT
  Age: 16 Year
  Sex: Male

DRUGS (1)
  1. NORDITROPIN FLEXPRO 10 MG/ML [Suspect]
     Indication: DWARFISM
     Dosage: 2.5 mg, qd
     Route: 058

REACTIONS (3)
  - Fall [Unknown]
  - Ulna fracture [Unknown]
  - Radius fracture [Unknown]
